FAERS Safety Report 4435127-1 (Version None)
Quarter: 2004Q3

REPORT INFORMATION
  Report Type: 
  Country: None (occurrence: None)
  Receive Date: 20040826
  Receipt Date: 20040817
  Transmission Date: 20050211
  Serious: Yes (Hospitalization)
  Sender: FDA-Public Use
  Company Number: HQ8338813MAR2001

PATIENT
  Age: 78 Year
  Sex: Female

DRUGS (3)
  1. CORDARONE [Suspect]
     Indication: ATRIAL FIBRILLATION
     Dosage: 200 MG 1X PER 1 DAY ORAL; 200 MG 5X PER 7 DAY ORAL; 200 MG 5X PER 7 DAY ORAL
     Route: 048
     Dates: start: 20000403, end: 20000401
  2. CORDARONE [Suspect]
     Indication: ATRIAL FIBRILLATION
     Dosage: 200 MG 1X PER 1 DAY ORAL; 200 MG 5X PER 7 DAY ORAL; 200 MG 5X PER 7 DAY ORAL
     Route: 048
     Dates: start: 20000401, end: 20000601
  3. CORDARONE [Suspect]
     Indication: ATRIAL FIBRILLATION
     Dosage: 200 MG 1X PER 1 DAY ORAL; 200 MG 5X PER 7 DAY ORAL; 200 MG 5X PER 7 DAY ORAL
     Route: 048
     Dates: start: 20010901

REACTIONS (5)
  - BLOOD THYROID STIMULATING HORMONE INCREASED [None]
  - BRONCHITIS [None]
  - CHEST PAIN [None]
  - HYPOTHYROIDISM [None]
  - LEFT VENTRICULAR FAILURE [None]
